FAERS Safety Report 7645590-0 (Version None)
Quarter: 2011Q3

REPORT INFORMATION
  Report Type: 
  Country: None (occurrence: None)
  Receive Date: 20110729
  Receipt Date: 20110725
  Transmission Date: 20111222
  Serious: Yes (Other)
  Sender: FDA-Public Use
  Company Number: IE-ROCHE-792508

PATIENT
  Sex: Male

DRUGS (4)
  1. ARCOXIA [Concomitant]
     Indication: RHEUMATOID ARTHRITIS
     Route: 048
  2. ACTEMRA [Suspect]
     Indication: SERONEGATIVE ARTHRITIS
     Dosage: EVERY 4/52 CONCENTRATE FOR SOULTION DRUG WITHDRAWN
     Route: 042
     Dates: start: 20101101
  3. PHENYTOIN SODIUM [Concomitant]
  4. ACETAMINOPHEN [Concomitant]

REACTIONS (4)
  - DYSPNOEA [None]
  - FLUSHING [None]
  - ERYTHEMA [None]
  - THROAT TIGHTNESS [None]
